FAERS Safety Report 8554953-0 (Version None)
Quarter: 2012Q3

REPORT INFORMATION
  Report Type: 
  Country: None (occurrence: None)
  Receive Date: 20120731
  Receipt Date: 20120112
  Transmission Date: 20120928
  Serious: Yes (Death, Other)
  Sender: FDA-Public Use
  Company Number: US-ROCHE-1094328

PATIENT
  Sex: Female

DRUGS (2)
  1. XOLAIR [Suspect]
     Route: 065
     Dates: end: 20040728
  2. XOLAIR [Suspect]
     Indication: ASTHMA
     Dosage: FOR 4 DOSES
     Route: 065

REACTIONS (4)
  - DEATH [None]
  - CARDIAC FAILURE CONGESTIVE [None]
  - PNEUMONIA [None]
  - CARDIOMYOPATHY [None]
